FAERS Safety Report 13264407 (Version 1)
Quarter: 2017Q1

REPORT INFORMATION
  Report Type: Spontaneous
  Country: US (occurrence: US)
  Receive Date: 20170223
  Receipt Date: 20170223
  Transmission Date: 20170428
  Serious: No
  Sender: FDA-Public Use
  Company Number: US-LANTHEUS-LMI-2016-04030

PATIENT
  Age: 62 Year
  Sex: Male
  Weight: 123 kg

DRUGS (1)
  1. DEFINITY [Suspect]
     Active Substance: PERFLUTREN
     Indication: ECHOCARDIOGRAM
     Dosage: 3 ML, UNK
     Route: 040
     Dates: start: 20160908, end: 20160908

REACTIONS (4)
  - Musculoskeletal stiffness [Recovered/Resolved]
  - Pain in extremity [Recovered/Resolved]
  - Dyskinesia [Recovered/Resolved]
  - Dyspnoea [Recovered/Resolved]

NARRATIVE: CASE EVENT DATE: 20160908
